FAERS Safety Report 11043177 (Version 1)
Quarter: 2015Q2

REPORT INFORMATION
  Report Type: Spontaneous
  Country: None (occurrence: None)
  Receive Date: 20150416
  Receipt Date: 20150416
  Transmission Date: 20150821
  Serious: No
  Sender: FDA-Public Use
  Company Number: None

PATIENT
  Age: 65 Year
  Sex: Female
  Weight: 75.75 kg

DRUGS (7)
  1. VERLAN [Concomitant]
  2. VERAPAMIL [Suspect]
     Active Substance: VERAPAMIL HYDROCHLORIDE
     Indication: LEFT VENTRICULAR DYSFUNCTION
     Dosage: 1
     Route: 048
     Dates: start: 20150414, end: 20150414
  3. DIAZEPAM. [Concomitant]
     Active Substance: DIAZEPAM
  4. CALAN [Concomitant]
     Active Substance: VERAPAMIL HYDROCHLORIDE
  5. ASPIRIN. [Concomitant]
     Active Substance: ASPIRIN
  6. ISOPTIN [Concomitant]
     Active Substance: VERAPAMIL HYDROCHLORIDE
  7. COVERA HS [Concomitant]

REACTIONS (1)
  - Burning feet syndrome [None]

NARRATIVE: CASE EVENT DATE: 20150415
